FAERS Safety Report 24219172 (Version 1)
Quarter: 2024Q3

REPORT INFORMATION
  Report Type: Spontaneous
  Country: US (occurrence: US)
  Receive Date: 20240816
  Receipt Date: 20240816
  Transmission Date: 20241017
  Serious: No
  Sender: BRISTOL MYERS SQUIBB
  Company Number: US-BRISTOL-MYERS SQUIBB COMPANY-2024-129265

PATIENT
  Age: 40 Year
  Sex: Male
  Weight: 74.39 kg

DRUGS (1)
  1. REVLIMID [Suspect]
     Active Substance: LENALIDOMIDE
     Indication: Vascular access placement
     Dosage: FREQUENCY: ONCE DAILY FOR 21 DAYS
     Route: 048

REACTIONS (4)
  - Oral discomfort [Unknown]
  - Oral pruritus [Unknown]
  - Palatal oedema [Unknown]
  - Off label use [Unknown]
